FAERS Safety Report 18940441 (Version 4)
Quarter: 2021Q4

REPORT INFORMATION
  Report Type: Spontaneous
  Country: US (occurrence: US)
  Receive Date: 20210225
  Receipt Date: 20211008
  Transmission Date: 20220303
  Serious: Yes (Other)
  Sender: FDA-Public Use
  Company Number: US-SA-SAC20210222001436

PATIENT
  Age: 10 Year
  Sex: Male

DRUGS (8)
  1. ALPROLIX [Suspect]
     Active Substance: EFTRENONACOG ALFA
     Indication: Factor IX deficiency
     Dosage: 2147 IU, QW
     Route: 042
     Dates: start: 20180411
  2. ALPROLIX [Suspect]
     Active Substance: EFTRENONACOG ALFA
     Indication: Factor IX deficiency
     Dosage: 2147 IU, QW
     Route: 042
     Dates: start: 20180411
  3. ALPROLIX [Suspect]
     Active Substance: EFTRENONACOG ALFA
     Dosage: 257 IU, QW
     Route: 042
     Dates: start: 20180411
  4. ALPROLIX [Suspect]
     Active Substance: EFTRENONACOG ALFA
     Dosage: 257 IU, QW
     Route: 042
     Dates: start: 20180411
  5. ALPROLIX [Suspect]
     Active Substance: EFTRENONACOG ALFA
     Dosage: 3000 IU
     Route: 042
     Dates: start: 20180411
  6. ALPROLIX [Suspect]
     Active Substance: EFTRENONACOG ALFA
     Dosage: 3000 IU
     Route: 042
     Dates: start: 20180411
  7. ALPROLIX [Suspect]
     Active Substance: EFTRENONACOG ALFA
     Dosage: 3000 IU, QW (2700-2200; SLOW IV PUSH)
     Route: 042
     Dates: start: 201806
  8. ALPROLIX [Suspect]
     Active Substance: EFTRENONACOG ALFA
     Dosage: 3000 IU, QW (2700-2200; SLOW IV PUSH)
     Route: 042
     Dates: start: 201806

REACTIONS (4)
  - Haemorrhage [Unknown]
  - Dehydration [Unknown]
  - Weight increased [Unknown]
  - Product dose omission issue [Unknown]

NARRATIVE: CASE EVENT DATE: 20210214
